FAERS Safety Report 10230484 (Version 1)
Quarter: 2014Q2

REPORT INFORMATION
  Report Type: Spontaneous
  Country: US (occurrence: US)
  Receive Date: 20140611
  Receipt Date: 20140611
  Transmission Date: 20141212
  Serious: No
  Sender: FDA-Public Use
  Company Number: US-INCYTE CORPORATION-2014IN000875

PATIENT
  Age: 73 Year
  Sex: Male

DRUGS (3)
  1. JAKAFI [Suspect]
     Indication: POLYCYTHAEMIA
     Dosage: 5 MG, BID
     Route: 048
     Dates: start: 20140319
  2. ALLOPURINOL [Concomitant]
     Dosage: UNK MG, UNK
  3. LEVOTHYROXINE [Concomitant]
     Dosage: UNK MCG, UNK

REACTIONS (1)
  - Gastric disorder [Unknown]
